FAERS Safety Report 8175940-0 (Version None)
Quarter: 2012Q1

REPORT INFORMATION
  Report Type: 
  Country: None (occurrence: None)
  Receive Date: 20120301
  Receipt Date: 20120224
  Transmission Date: 20120608
  Serious: No
  Sender: FDA-Public Use
  Company Number: US-PFIZER INC-2012022321

PATIENT
  Sex: Female
  Weight: 104 kg

DRUGS (7)
  1. CELEBREX [Suspect]
     Indication: POLYMYALGIA RHEUMATICA
  2. VITAMIN B6 [Concomitant]
     Dosage: UNK
  3. CALCIUM [Concomitant]
     Dosage: UNK
  4. MULTI-VITAMINS [Concomitant]
     Dosage: UNK
  5. CELEBREX [Suspect]
     Indication: ARTHRITIS
     Dosage: 200 MG, DAILY
     Route: 048
     Dates: start: 20120101
  6. CELEBREX [Suspect]
     Indication: PAIN
  7. FISH OIL [Concomitant]
     Dosage: UNK

REACTIONS (2)
  - DYSPNOEA [None]
  - PARAESTHESIA [None]
